FAERS Safety Report 8399749-8 (Version None)
Quarter: 2012Q2

REPORT INFORMATION
  Report Type: 
  Country: None (occurrence: None)
  Receive Date: 20120531
  Receipt Date: 20120528
  Transmission Date: 20120825
  Serious: Yes (Hospitalization, Other)
  Sender: FDA-Public Use
  Company Number: BR-PFIZER INC-2012128680

PATIENT
  Age: 72 Year
  Sex: Male
  Weight: 84 kg

DRUGS (7)
  1. LIPITOR [Suspect]
     Dosage: 20 MG (ONE TABLET), 1X/DAY
     Route: 048
     Dates: start: 20000101
  2. CITALOPRAM [Concomitant]
     Indication: RELAXATION THERAPY
  3. INSULIN [Concomitant]
     Indication: DIABETES MELLITUS
  4. ALLOPURINOL [Concomitant]
     Indication: RENAL DISORDER
  5. PLAVIX [Concomitant]
     Indication: CARDIAC DISORDER
  6. METOPROLOL SUCCINATE [Concomitant]
     Indication: BLOOD PRESSURE
  7. AMLODIPINE [Concomitant]
     Indication: BLOOD PRESSURE

REACTIONS (2)
  - RENAL IMPAIRMENT [None]
  - CEREBROVASCULAR ACCIDENT [None]
